FAERS Safety Report 10669750 (Version 3)
Quarter: 2015Q2

REPORT INFORMATION
  Report Type: Spontaneous
  Country: US (occurrence: US)
  Receive Date: 20141222
  Receipt Date: 20150511
  Transmission Date: 20150821
  Serious: Yes (Hospitalization)
  Sender: FDA-Public Use
  Company Number: US-GLAXOSMITHKLINE-US2014039472

PATIENT
  Age: 67 Year
  Sex: Male
  Weight: 70.3 kg

DRUGS (16)
  1. BUMEX [Concomitant]
     Active Substance: BUMETANIDE
  2. CENTRUM SILVER [Concomitant]
     Active Substance: VITAMINS
  3. OMEPRAZOLE. [Concomitant]
     Active Substance: OMEPRAZOLE
  4. PREDNISONE. [Concomitant]
     Active Substance: PREDNISONE
  5. SIMVASTATIN. [Concomitant]
     Active Substance: SIMVASTATIN
  6. ALBUTEROL NEBULIZER [Concomitant]
     Active Substance: ALBUTEROL
  7. METOPROLOL [Concomitant]
     Active Substance: METOPROLOL
  8. VITAMIN D3 [Concomitant]
     Active Substance: CHOLECALCIFEROL
  9. HYDROCODONE [Concomitant]
     Active Substance: HYDROCODONE
  10. NITROSTAT [Concomitant]
     Active Substance: NITROGLYCERIN
  11. TYLENOL [Concomitant]
     Active Substance: ACETAMINOPHEN
  12. ADVAIR DISKUS [Suspect]
     Active Substance: FLUTICASONE PROPIONATE\SALMETEROL XINAFOATE
     Indication: CHRONIC OBSTRUCTIVE PULMONARY DISEASE
     Dosage: UNK UNK, U
     Route: 055
     Dates: start: 2005
  13. FLUNISOLIDE NASAL SPRAY [Concomitant]
  14. SPIRONOLACTONE. [Concomitant]
     Active Substance: SPIRONOLACTONE
  15. ADVAIR DISKUS [Suspect]
     Active Substance: FLUTICASONE PROPIONATE\SALMETEROL XINAFOATE
     Indication: EMPHYSEMA
     Dosage: 1 PUFF(S), QD
     Dates: start: 201312
  16. WARFARIN [Concomitant]
     Active Substance: WARFARIN

REACTIONS (3)
  - Underdose [Unknown]
  - Malaise [Recovering/Resolving]
  - Dyspnoea [Recovering/Resolving]

NARRATIVE: CASE EVENT DATE: 201312
